FAERS Safety Report 20019867 (Version 1)
Quarter: 2021Q4

REPORT INFORMATION
  Report Type: Spontaneous
  Country: US (occurrence: US)
  Receive Date: 20211101
  Receipt Date: 20211101
  Transmission Date: 20220303
  Serious: No
  Sender: FDA-Public Use
  Company Number: US-AMGEN-USASP2021168864

PATIENT
  Age: 76 Year
  Sex: Female

DRUGS (11)
  1. OTEZLA [Suspect]
     Active Substance: APREMILAST
     Indication: Off label use
     Dosage: 30 MILLIGRAM, BID
     Route: 048
  2. FUROSEMIDE [Concomitant]
     Active Substance: FUROSEMIDE
     Route: 065
  3. LISINOPRIL [Concomitant]
     Active Substance: LISINOPRIL
  4. SPIRIVA [Concomitant]
     Active Substance: TIOTROPIUM BROMIDE MONOHYDRATE
  5. BISOPROLOL [Concomitant]
     Active Substance: BISOPROLOL
  6. DISODIUM FUMARATE [Concomitant]
     Active Substance: DISODIUM FUMARATE
  7. LEVOFLOXACIN [Concomitant]
     Active Substance: LEVOFLOXACIN
  8. PRAVASTATIN SODIUM [Concomitant]
     Active Substance: PRAVASTATIN SODIUM
  9. KLOR-CON [Concomitant]
     Active Substance: POTASSIUM CHLORIDE
  10. XOPENEX HFA [Concomitant]
     Active Substance: LEVALBUTEROL TARTRATE
     Dosage: UNK
     Route: 065
  11. PREDNISONE [Concomitant]
     Active Substance: PREDNISONE

REACTIONS (2)
  - Product dose omission issue [Unknown]
  - Off label use [Unknown]

NARRATIVE: CASE EVENT DATE: 20210901
